FAERS Safety Report 6729833-3 (Version None)
Quarter: 2010Q2

REPORT INFORMATION
  Report Type: 
  Country: None (occurrence: None)
  Receive Date: 20100513
  Receipt Date: 20100506
  Transmission Date: 20101027
  Serious: Yes (Other)
  Sender: FDA-Public Use
  Company Number: VISP-NO-1005S-0227

PATIENT
  Age: 63 Year
  Sex: Female

DRUGS (4)
  1. VISIPAQUE [Suspect]
     Indication: NON-SMALL CELL LUNG CANCER
     Dosage: 144 ML, SINGLE DOSE; SINGLE DOSE; IV
     Route: 042
     Dates: start: 20060214, end: 20060214
  2. VISIPAQUE [Suspect]
     Indication: NON-SMALL CELL LUNG CANCER
     Dosage: 144 ML, SINGLE DOSE; SINGLE DOSE; IV
     Route: 042
     Dates: start: 20090612, end: 20090612
  3. TAXOL [Suspect]
     Dates: start: 20060224, end: 20060427
  4. CARBOPLATIN [Concomitant]

REACTIONS (7)
  - ARTHRITIS [None]
  - FALL [None]
  - FOOT DEFORMITY [None]
  - NAUSEA [None]
  - NEUROPATHY PERIPHERAL [None]
  - PAIN [None]
  - VOMITING [None]
